FAERS Safety Report 15948350 (Version 1)
Quarter: 2019Q1

REPORT INFORMATION
  Report Type: Spontaneous
  Country: JP (occurrence: JP)
  Receive Date: 20190212
  Receipt Date: 20190212
  Transmission Date: 20190417
  Serious: Yes (Other)
  Sender: FDA-Public Use
  Company Number: JP-SAKK-BA201701237001

PATIENT
  Age: 66 Year
  Sex: Male

DRUGS (3)
  1. EYEVINAL [Concomitant]
     Indication: RHINITIS ALLERGIC
     Route: 047
     Dates: start: 20160206
  2. DELLEGRA COMBINATION TABLETS [Suspect]
     Active Substance: FEXOFENADINE HYDROCHLORIDE\PSEUDOEPHEDRINE HYDROCHLORIDE
     Indication: RHINITIS ALLERGIC
     Dosage: 4 DF, QD
     Route: 048
     Dates: start: 20170128, end: 20170218
  3. EYEVINAL [Concomitant]
     Indication: CONJUNCTIVITIS

REACTIONS (1)
  - Urinary retention [Recovered/Resolved]

NARRATIVE: CASE EVENT DATE: 20170209
